FAERS Safety Report 15677071 (Version 1)
Quarter: 2018Q4

REPORT INFORMATION
  Report Type: Spontaneous
  Country: US (occurrence: US)
  Receive Date: 20181130
  Receipt Date: 20181130
  Transmission Date: 20190205
  Serious: No
  Sender: FDA-Public Use
  Company Number: US-PFIZER INC-2018488823

PATIENT
  Age: 10 Year
  Sex: Male

DRUGS (1)
  1. GENOTROPIN [Suspect]
     Active Substance: SOMATROPIN
     Dosage: 1.6 MG, UNK (6 DAYS A WEEK)

REACTIONS (5)
  - Decreased appetite [Recovering/Resolving]
  - Anion gap increased [Unknown]
  - Blood alkaline phosphatase decreased [Unknown]
  - Weight decreased [Unknown]
  - Dizziness [Unknown]
